FAERS Safety Report 10216045 (Version 1)
Quarter: 2014Q2

REPORT INFORMATION
  Report Type: Spontaneous
  Country: US (occurrence: None)
  Receive Date: 20140603
  Receipt Date: 20140603
  Transmission Date: 20141212
  Serious: Yes (Disabling, Other)
  Sender: FDA-Public Use
  Company Number: None

PATIENT
  Age: 36 Year
  Sex: Female
  Weight: 81.65 kg

DRUGS (2)
  1. CIPRO [Suspect]
     Indication: SINUSITIS
     Dosage: 1 PILL  THREE TIMES DAILY  TAKEN BY MOUTH
     Route: 048
     Dates: start: 20120331, end: 20120630
  2. LEVAQUIN [Suspect]

REACTIONS (22)
  - Pain in extremity [None]
  - Pain in extremity [None]
  - Pain in extremity [None]
  - Pain in extremity [None]
  - Neuropathy peripheral [None]
  - Anxiety [None]
  - Panic attack [None]
  - Syncope [None]
  - Concussion [None]
  - Muscle twitching [None]
  - Muscle spasms [None]
  - Migraine [None]
  - Eye disorder [None]
  - Vitreous floaters [None]
  - Vision blurred [None]
  - Ventricular extrasystoles [None]
  - Gait disturbance [None]
  - Gastric disorder [None]
  - Irritable bowel syndrome [None]
  - Joint crepitation [None]
  - Carpal tunnel syndrome [None]
  - Weight decreased [None]
